FAERS Safety Report 5889744-2 (Version None)
Quarter: 2008Q3

REPORT INFORMATION
  Report Type: 
  Country: None (occurrence: None)
  Receive Date: 20080919
  Receipt Date: 20080909
  Transmission Date: 20090109
  Serious: Yes (Death, Other)
  Sender: FDA-Public Use
  Company Number: US-MERCK-0804USA01817

PATIENT
  Age: 76 Year
  Sex: Female

DRUGS (2)
  1. FOSAMAX [Suspect]
     Indication: RHEUMATOID ARTHRITIS
     Route: 048
     Dates: start: 20030715
  2. FOSAMAX [Suspect]
     Route: 048
     Dates: end: 20070201

REACTIONS (9)
  - ADVERSE DRUG REACTION [None]
  - BONE MARROW DISORDER [None]
  - DEATH [None]
  - DIARRHOEA [None]
  - OSTEOMYELITIS [None]
  - OSTEONECROSIS [None]
  - OSTEOPOROSIS [None]
  - PEPTIC ULCER [None]
  - SKIN CANCER [None]
